FAERS Safety Report 10855836 (Version 1)
Quarter: 2015Q1

REPORT INFORMATION
  Report Type: Spontaneous
  Country: US (occurrence: None)
  Receive Date: 20150218
  Receipt Date: 20150218
  Transmission Date: 20150721
  Serious: Yes (Hospitalization)
  Sender: FDA-Public Use
  Company Number: None

PATIENT
  Age: 68 Year
  Sex: Female
  Weight: 108.86 kg

DRUGS (1)
  1. CIPROFLOXACIN HCL 500 MG GENERIC [Suspect]
     Active Substance: CIPROFLOXACIN HYDROCHLORIDE
     Indication: DIVERTICULITIS
     Dosage: 1  TWICE DAILY  TAKEN BY MOUTH
     Route: 048
     Dates: start: 20150108, end: 20150115

REACTIONS (8)
  - Nausea [None]
  - Oedema [None]
  - Confusional state [None]
  - Vomiting [None]
  - Acute kidney injury [None]
  - Pancreatitis [None]
  - Hypophagia [None]
  - Tubulointerstitial nephritis [None]

NARRATIVE: CASE EVENT DATE: 20150117
